FAERS Safety Report 8571067-4 (Version None)
Quarter: 2012Q3

REPORT INFORMATION
  Report Type: 
  Country: None (occurrence: None)
  Receive Date: 20120806
  Receipt Date: 20120801
  Transmission Date: 20120928
  Serious: No
  Sender: FDA-Public Use
  Company Number: US-PFIZER INC-2012173425

PATIENT
  Age: 91 Year
  Sex: Male
  Weight: 61.224 kg

DRUGS (6)
  1. GLYBURIDE [Concomitant]
     Indication: DIABETES MELLITUS
     Dosage: 1.25 MG, DAILY (1 AND A QUARTER OF 1MG TABLET)
  2. LIPITOR [Concomitant]
     Indication: BLOOD CHOLESTEROL ABNORMAL
     Dosage: 20 MG, DAILY
     Route: 048
  3. NORVASC [Suspect]
     Indication: HYPERTENSION
     Dosage: 10 MG, DAILY
     Route: 048
  4. ACETYLSALICYLIC ACID [Concomitant]
     Indication: ANTICOAGULANT THERAPY
     Dosage: 81 MG, DAILY
  5. CALCIUM [Concomitant]
     Dosage: UNK
  6. ATENOLOL [Concomitant]
     Indication: HYPERTENSION
     Dosage: 25 MG, DAILY

REACTIONS (1)
  - FALL [None]
